FAERS Safety Report 9694269 (Version 3)
Quarter: 2013Q4

REPORT INFORMATION
  Report Type: Spontaneous
  Country: US (occurrence: US)
  Receive Date: 20131118
  Receipt Date: 20131205
  Transmission Date: 20140711
  Serious: No
  Sender: FDA-Public Use
  Company Number: US-PFIZER INC-2013296404

PATIENT
  Sex: Female
  Weight: 81.6 kg

DRUGS (1)
  1. PREMARIN [Suspect]
     Indication: MENOPAUSAL SYMPTOMS
     Dosage: 0.625 MG, WEEKLY
     Route: 067

REACTIONS (1)
  - Nipple pain [Not Recovered/Not Resolved]
